FAERS Safety Report 6656525-1 (Version None)
Quarter: 2010Q1

REPORT INFORMATION
  Report Type: 
  Country: None (occurrence: None)
  Receive Date: 20100329
  Receipt Date: 20100319
  Transmission Date: 20100710
  Serious: Yes (Hospitalization, Other)
  Sender: FDA-Public Use
  Company Number: US-ASTRAZENECA-2009UW05084

PATIENT
  Age: 85 Year
  Sex: Female

DRUGS (6)
  1. SEROQUEL [Suspect]
     Indication: BEREAVEMENT
     Route: 048
  2. SEROQUEL [Suspect]
     Indication: SUICIDAL BEHAVIOUR
     Route: 048
  3. BLOOD PRESSURE PILL [Concomitant]
  4. GLUCOSIDE [Concomitant]
  5. LEXAPRO [Concomitant]
  6. CLONAZEPAM [Concomitant]

REACTIONS (7)
  - CRYING [None]
  - DIABETES MELLITUS [None]
  - FATIGUE [None]
  - HYPOAESTHESIA [None]
  - INCORRECT DOSE ADMINISTERED [None]
  - OVERDOSE [None]
  - SUICIDAL IDEATION [None]
